FAERS Safety Report 24669837 (Version 1)
Quarter: 2024Q4

REPORT INFORMATION
  Report Type: Spontaneous
  Country: CA (occurrence: CA)
  Receive Date: 20241127
  Receipt Date: 20241127
  Transmission Date: 20250114
  Serious: Yes (Other)
  Sender: PFIZER
  Company Number: CA-PFIZER INC-202400285227

PATIENT
  Age: 54 Year
  Sex: Female
  Weight: 60 kg

DRUGS (6)
  1. XELJANZ XR [Suspect]
     Active Substance: TOFACITINIB CITRATE
     Indication: Rheumatoid arthritis
     Dosage: 11 MG, 1X/DAY
     Route: 048
     Dates: start: 20210513
  2. XELJANZ XR [Suspect]
     Active Substance: TOFACITINIB CITRATE
     Dosage: 11 MG, 1X/DAY
     Route: 048
     Dates: start: 20210622
  3. LEVOTHYROXINE [Concomitant]
     Active Substance: LEVOTHYROXINE
     Dosage: UNK
  4. HYDROXYCHLOROQUINE SULFATE [Concomitant]
     Active Substance: HYDROXYCHLOROQUINE SULFATE
     Dosage: UNK, 200/400 MG
     Dates: start: 20200716, end: 20210830
  5. HYDROXYCHLOROQUINE SULFATE [Concomitant]
     Active Substance: HYDROXYCHLOROQUINE SULFATE
     Dosage: UNK, 200/400 MG
     Dates: start: 20210830, end: 202207
  6. DULOXETINE [Concomitant]
     Active Substance: DULOXETINE
     Dosage: 30 MG
     Dates: start: 20240124

REACTIONS (9)
  - Hydrosalpinx [Unknown]
  - Illness [Unknown]
  - Haemangioma of liver [Unknown]
  - Pancreatic cyst [Unknown]
  - Renal cyst [Unknown]
  - Uterine leiomyoma [Unknown]
  - Disease recurrence [Unknown]
  - Urinary tract infection [Unknown]
  - Suprapubic pain [Unknown]

NARRATIVE: CASE EVENT DATE: 20220101
